FAERS Safety Report 10095077 (Version 1)
Quarter: 2014Q2

REPORT INFORMATION
  Report Type: Spontaneous
  Country: US (occurrence: US)
  Receive Date: 20140422
  Receipt Date: 20140422
  Transmission Date: 20141212
  Serious: No
  Sender: FDA-Public Use
  Company Number: US-TEVA-476965USA

PATIENT
  Sex: Female

DRUGS (2)
  1. ORAL TRANSMUCOSAL FENTANYL CITRATE [Suspect]
     Indication: PRODUCT USED FOR UNKNOWN INDICATION
     Route: 048
  2. SUBSYS [Concomitant]
     Route: 060

REACTIONS (2)
  - Tooth injury [Not Recovered/Not Resolved]
  - Tooth disorder [Unknown]
